FAERS Safety Report 13487778 (Version 1)
Quarter: 2017Q2

REPORT INFORMATION
  Report Type: Spontaneous
  Country: US (occurrence: US)
  Receive Date: 20170426
  Receipt Date: 20170426
  Transmission Date: 20170830
  Serious: No
  Sender: FDA-Public Use
  Company Number: US-ALKERMES INC.-ALK-2016-001071

PATIENT
  Age: 25 Year
  Sex: Male
  Weight: 90.7 kg

DRUGS (6)
  1. ROBAXIN [Concomitant]
     Active Substance: METHOCARBAMOL
     Indication: PRODUCT USED FOR UNKNOWN INDICATION
     Dosage: 750 MG, QD
     Route: 048
  2. IBUPROFEN. [Concomitant]
     Active Substance: IBUPROFEN
     Indication: HEADACHE
     Dosage: 800 MG, QD
     Route: 048
  3. PHENERGAN [Concomitant]
     Active Substance: PROMETHAZINE HYDROCHLORIDE
     Indication: NAUSEA
     Dosage: 1 DF, QD
     Route: 048
  4. REMERON [Concomitant]
     Active Substance: MIRTAZAPINE
     Indication: DECREASED APPETITE
  5. VIVITROL [Suspect]
     Active Substance: NALTREXONE
     Indication: DRUG USE DISORDER
     Dosage: 380 MG, QMO
     Route: 030
     Dates: start: 20160321
  6. REMERON [Concomitant]
     Active Substance: MIRTAZAPINE
     Indication: INSOMNIA
     Dosage: 1 DF, QD
     Route: 048

REACTIONS (9)
  - Insomnia [Unknown]
  - Euphoric mood [Unknown]
  - Stress [Unknown]
  - Substance use disorder [Unknown]
  - Drug use disorder [Recovered/Resolved]
  - Headache [Unknown]
  - Dependence [Recovered/Resolved]
  - Nausea [Unknown]
  - Decreased appetite [Unknown]

NARRATIVE: CASE EVENT DATE: 201604
